FAERS Safety Report 11603195 (Version 1)
Quarter: 2015Q4

REPORT INFORMATION
  Report Type: Spontaneous
  Country: US (occurrence: US)
  Receive Date: 20151006
  Receipt Date: 20151006
  Transmission Date: 20160304
  Serious: No
  Sender: FDA-Public Use
  Company Number: US-AMGEN-USASP2014097826

PATIENT
  Age: 50 Year
  Sex: Female

DRUGS (2)
  1. ESTROGEN [Concomitant]
     Active Substance: ESTRONE\SUS SCROFA OVARY
     Dosage: UNK
  2. PROLIA [Suspect]
     Active Substance: DENOSUMAB
     Indication: OSTEOPOROSIS POSTMENOPAUSAL
     Dosage: UNK
     Route: 065
     Dates: start: 201410

REACTIONS (8)
  - Gait disturbance [Unknown]
  - Blood cholesterol increased [Unknown]
  - Constipation [Unknown]
  - Pain in extremity [Unknown]
  - Eating disorder [Unknown]
  - Arthralgia [Unknown]
  - Adverse drug reaction [Unknown]
  - Bone density abnormal [Unknown]

NARRATIVE: CASE EVENT DATE: 201411
